FAERS Safety Report 9494024 (Version 1)
Quarter: 2013Q3

REPORT INFORMATION
  Report Type: Spontaneous
  Country: US (occurrence: None)
  Receive Date: 20130829
  Receipt Date: 20130829
  Transmission Date: 20140515
  Serious: Yes (Other)
  Sender: FDA-Public Use
  Company Number: None

PATIENT
  Age: 63 Year
  Sex: Female
  Weight: 49.9 kg

DRUGS (1)
  1. REMICADE [Suspect]
     Indication: RHEUMATOID ARTHRITIS
     Dosage: 3MG/KG WEEK 0,2,6 THEN EVERY 2 MOS IV
     Route: 042
     Dates: start: 201306, end: 201307

REACTIONS (5)
  - Fungal infection [None]
  - Localised infection [None]
  - Candida infection [None]
  - Haemorrhoids [None]
  - Contusion [None]
